FAERS Safety Report 21585762 (Version 1)
Quarter: 2022Q4

REPORT INFORMATION
  Report Type: Report from Study
  Country: US (occurrence: US)
  Receive Date: 20221111
  Receipt Date: 20221111
  Transmission Date: 20230112
  Serious: Yes (Hospitalization)
  Sender: FDA-Public Use
  Company Number: US-PFIZER INC-PV202200095066

PATIENT
  Age: 78 Year
  Sex: Male
  Weight: 108 kg

DRUGS (2)
  1. LORLATINIB [Suspect]
     Active Substance: LORLATINIB
     Dosage: 50 MG, QD
     Route: 048
     Dates: start: 20220519, end: 20221030
  2. CRIZOTINIB [Suspect]
     Active Substance: CRIZOTINIB
     Dosage: 250 MG, BID
     Route: 048

REACTIONS (2)
  - Troponin increased [Unknown]
  - Fatigue [Unknown]

NARRATIVE: CASE EVENT DATE: 20221029
